FAERS Safety Report 5763459-3 (Version None)
Quarter: 2008Q2

REPORT INFORMATION
  Report Type: 
  Country: None (occurrence: None)
  Receive Date: 20080604
  Receipt Date: 20080604
  Transmission Date: 20081010
  Serious: Yes (Other)
  Sender: FDA-Public Use
  Company Number: None

PATIENT
  Age: 46 Year
  Sex: Female

DRUGS (1)
  1. ARMOUR THYROID 1/4 GRAIN AND 1 GRAIN FOREST [Suspect]
     Indication: HYPOTHYROIDISM
     Dosage: 1/4 GRAIN: 3 TABS DAILY AND 1 GRAIN: 1 TAB

REACTIONS (2)
  - ARTHRALGIA [None]
  - PELVIC PAIN [None]
